FAERS Safety Report 9854825 (Version 2)
Quarter: 2014Q1

REPORT INFORMATION
  Report Type: Spontaneous
  Country: JP (occurrence: JP)
  Receive Date: 20140130
  Receipt Date: 20140211
  Transmission Date: 20141002
  Serious: Yes (Other)
  Sender: FDA-Public Use
  Company Number: JP-JNJFOC-20140113913

PATIENT
  Age: 53 Year
  Sex: Male

DRUGS (1)
  1. INFLIXIMAB, RECOMBINANT [Suspect]
     Indication: BEHCET^S SYNDROME
     Dosage: AT WEEKS 0, 2 AND 6 THEN EVERY 8 WEEKS
     Route: 042

REACTIONS (2)
  - Uveitis [Unknown]
  - Drug ineffective [Unknown]
